FAERS Safety Report 25088115 (Version 2)
Quarter: 2025Q1

REPORT INFORMATION
  Report Type: Report from Study
  Country: US (occurrence: US)
  Receive Date: 20250318
  Receipt Date: 20250324
  Transmission Date: 20250408
  Serious: Yes (Hospitalization)
  Sender: CSL BEHRING
  Company Number: US-BEH-2024187933

PATIENT
  Age: 70 Year
  Sex: Female
  Weight: 79.378 kg

DRUGS (2)
  1. ZEMAIRA [Suspect]
     Active Substance: .ALPHA.1-PROTEINASE INHIBITOR HUMAN
     Indication: Alpha-1 antitrypsin deficiency
     Route: 065
  2. ZEMAIRA [Suspect]
     Active Substance: .ALPHA.1-PROTEINASE INHIBITOR HUMAN
     Dosage: UNK UNK, QW (PRODUCT STRENGTH: 60)
     Route: 065

REACTIONS (8)
  - Pneumonia [Unknown]
  - Dyspnoea [Unknown]
  - Product dose omission issue [Unknown]
  - Pneumonia [Unknown]
  - Chronic obstructive pulmonary disease [Unknown]
  - Dyspnoea [Unknown]
  - Cough [Unknown]
  - Insurance issue [Unknown]

NARRATIVE: CASE EVENT DATE: 20250201
